FAERS Safety Report 7644447-9 (Version None)
Quarter: 2011Q3

REPORT INFORMATION
  Report Type: 
  Country: None (occurrence: None)
  Receive Date: 20110729
  Receipt Date: 20110722
  Transmission Date: 20111222
  Serious: Yes (Other)
  Sender: FDA-Public Use
  Company Number: JP-ROCHE-769237

PATIENT
  Sex: Male
  Weight: 50 kg

DRUGS (9)
  1. LOXOPROFEN [Concomitant]
     Route: 048
     Dates: start: 20110316, end: 20110323
  2. MS CONTIN [Concomitant]
     Route: 048
     Dates: start: 20110316, end: 20110323
  3. POLARAMINE [Concomitant]
     Route: 042
     Dates: start: 20110322, end: 20110322
  4. AVASTIN [Suspect]
     Indication: LUNG ADENOCARCINOMA METASTATIC
     Route: 041
     Dates: start: 20110322, end: 20110322
  5. FAMOTIDINE [Concomitant]
     Route: 042
     Dates: start: 20110322, end: 20110322
  6. DEXAMETHASONE SODIUM PHOSPHATE [Concomitant]
     Route: 042
     Dates: start: 20110322, end: 20110322
  7. ALOXI [Concomitant]
     Route: 042
     Dates: start: 20110322, end: 20110322
  8. CARBOPLATIN [Concomitant]
     Route: 041
     Dates: start: 20110322, end: 20110322
  9. PACLITAXEL [Concomitant]
     Route: 041
     Dates: start: 20110322, end: 20110322

REACTIONS (4)
  - LARGE INTESTINE PERFORATION [None]
  - DIVERTICULITIS [None]
  - INFECTIOUS PERITONITIS [None]
  - GASTROINTESTINAL PERFORATION [None]
